FAERS Safety Report 10846573 (Version 1)
Quarter: 2015Q1

REPORT INFORMATION
  Report Type: Spontaneous
  Country: NL (occurrence: NL)
  Receive Date: 20150220
  Receipt Date: 20150220
  Transmission Date: 20150721
  Serious: Yes (Disabling)
  Sender: FDA-Public Use
  Company Number: NL-TEVA-541818ISR

PATIENT
  Age: 67 Year
  Sex: Male
  Weight: 106 kg

DRUGS (4)
  1. PROCORALAN TABLET FILMOMHULD 5MG [Concomitant]
     Dosage: TWICE DAILY ONE PIECE
     Route: 048
     Dates: start: 20131101
  2. LOSARTAN KALIUM PCH TABLET OMHULD 25MG [Suspect]
     Active Substance: LOSARTAN
     Indication: CARDIAC DISORDER
     Dosage: TWICE DAILY ONE PIECE
     Route: 048
     Dates: start: 20131101
  3. SIMVASTATINE [Concomitant]
     Active Substance: SIMVASTATIN
     Dosage: 1 DOSAGE FORMS DAILY; ONCE DAILY ONE PIECE
     Route: 048
     Dates: start: 20140310
  4. ACETYLSALICYLZUUR TABLET  80MG [Concomitant]
     Dosage: 80 MILLIGRAM DAILY; ONCE DAILY ONE PIECE
     Route: 048
     Dates: start: 20131101

REACTIONS (2)
  - Psoriasis [Not Recovered/Not Resolved]
  - Drug interaction [None]

NARRATIVE: CASE EVENT DATE: 20140310
